FAERS Safety Report 10267444 (Version 1)
Quarter: 2014Q2

REPORT INFORMATION
  Report Type: Spontaneous
  Country: JP (occurrence: JP)
  Receive Date: 20140630
  Receipt Date: 20140630
  Transmission Date: 20141212
  Serious: Yes (Life-Threatening, Hospitalization)
  Sender: FDA-Public Use
  Company Number: JP-SA-2014SA085495

PATIENT
  Age: 34 Year
  Sex: Male
  Weight: 39.6 kg

DRUGS (6)
  1. THYMOGLOBULINE [Suspect]
     Indication: BONE MARROW CONDITIONING REGIMEN
     Route: 042
     Dates: start: 20131009, end: 20131009
  2. METHYLPREDNISOLONE [Concomitant]
     Dates: end: 20140103
  3. TACROLIMUS [Concomitant]
     Dates: start: 20130902, end: 20131230
  4. VENILON [Concomitant]
     Dates: start: 20130903, end: 20140104
  5. FINIBAX [Concomitant]
     Indication: INFECTION PROPHYLAXIS
     Dates: end: 20140104
  6. CANCIDAS [Concomitant]
     Indication: INFECTION PROPHYLAXIS
     Dates: start: 20130903, end: 20140104

REACTIONS (6)
  - Chest X-ray abnormal [Not Recovered/Not Resolved]
  - Biliary tract disorder [Not Recovered/Not Resolved]
  - Thrombotic microangiopathy [Not Recovered/Not Resolved]
  - Immunodeficiency [Not Recovered/Not Resolved]
  - Cytomegalovirus enterocolitis [Not Recovered/Not Resolved]
  - Viral haemorrhagic cystitis [Not Recovered/Not Resolved]
